FAERS Safety Report 15108774 (Version 1)
Quarter: 2018Q3

REPORT INFORMATION
  Report Type: Spontaneous
  Country: GR (occurrence: GR)
  Receive Date: 20180705
  Receipt Date: 20180705
  Transmission Date: 20181010
  Serious: Yes (Hospitalization, Other)
  Sender: FDA-Public Use
  Company Number: GR-009507513-1807GRC000054

PATIENT
  Age: 62 Year
  Sex: Male

DRUGS (2)
  1. BRIDION [Suspect]
     Active Substance: SUGAMMADEX
     Indication: NEUROMUSCULAR BLOCKADE REVERSAL
     Dosage: INSTEAD OF 16 MG/KG BRIDION, APPROXIMATELY THE HALF DOSE DUE TO MEDICATION ERROR
  2. ROCURONIUM BROMIDE. [Suspect]
     Active Substance: ROCURONIUM BROMIDE

REACTIONS (3)
  - Recurrence of neuromuscular blockade [Unknown]
  - Brain hypoxia [Unknown]
  - Drug prescribing error [Unknown]
